FAERS Safety Report 19134227 (Version 4)
Quarter: 2022Q3

REPORT INFORMATION
  Report Type: Other
  Country: GB (occurrence: None)
  Receive Date: 20210414
  Receipt Date: 20220907
  Transmission Date: 20221026
  Serious: Yes (Other)
  Sender: FDA-Public Use
  Company Number: GB-ROCHE-2096416

PATIENT
  Age: 62 Year
  Sex: Female

DRUGS (15)
  1. PERTUZUMAB [Suspect]
     Active Substance: PERTUZUMAB
     Indication: Breast cancer
     Route: 042
     Dates: start: 20170330, end: 20170330
  2. TRASTUZUMAB [Suspect]
     Active Substance: TRASTUZUMAB
     Indication: Breast cancer
     Route: 042
     Dates: start: 20170330, end: 20170330
  3. DOCETAXEL [Suspect]
     Active Substance: DOCETAXEL
     Indication: Breast cancer
     Route: 042
     Dates: start: 20170330, end: 20170330
  4. OMEPRAZOLE [Concomitant]
     Active Substance: OMEPRAZOLE
  5. SULFASALAZINE [Concomitant]
     Active Substance: SULFASALAZINE
  6. DENOSUMAB [Concomitant]
     Active Substance: DENOSUMAB
     Dates: start: 20170329
  7. FOLIC ACID [Concomitant]
     Active Substance: FOLIC ACID
  8. HYDROXOCOBALAMIN [Concomitant]
     Active Substance: HYDROXOCOBALAMIN
  9. CHOLESTYRAMINE [Concomitant]
     Active Substance: CHOLESTYRAMINE
  10. BECLOMETHASONE [Concomitant]
     Active Substance: BECLOMETHASONE
  11. VENTOLIN [Concomitant]
     Active Substance: ALBUTEROL SULFATE
  12. PREGABALIN [Concomitant]
     Active Substance: PREGABALIN
  13. MORPHINE SULFATE [Concomitant]
     Active Substance: MORPHINE SULFATE
  14. INVESTIGATIONAL PRODUCT [Concomitant]
     Active Substance: INVESTIGATIONAL PRODUCT
     Route: 065
     Dates: start: 20210206, end: 20210206
  15. INVESTIGATIONAL PRODUCT [Concomitant]
     Active Substance: INVESTIGATIONAL PRODUCT
     Route: 065
     Dates: start: 20210218, end: 20210418

REACTIONS (5)
  - Sarcoma [Not Recovered/Not Resolved]
  - Cellulitis [Unknown]
  - Localised infection [Unknown]
  - Neutrophil count decreased [Recovered/Resolved]
  - Diarrhoea [Recovered/Resolved]

NARRATIVE: CASE EVENT DATE: 20170711
